FAERS Safety Report 5397371-9 (Version None)
Quarter: 2007Q3

REPORT INFORMATION
  Report Type: 
  Country: None (occurrence: None)
  Receive Date: 20070726
  Receipt Date: 20070723
  Transmission Date: 20080115
  Serious: Yes (Other)
  Sender: FDA-Public Use
  Company Number: PHEH2007US07345

PATIENT
  Age: 49 Year
  Sex: Female

DRUGS (3)
  1. DIOVAN HCT [Suspect]
     Indication: HYPERTENSION
     Dosage: 320MG VAL/12.5MG HCT, QD
     Dates: start: 20070430
  2. DIOVAN [Suspect]
     Indication: HYPERTENSION
     Dosage: 160 MG, QD
     Route: 048
     Dates: start: 20070301
  3. DIOVAN [Suspect]
     Dosage: 320 MG, QD
     Route: 048

REACTIONS (2)
  - MUSCLE SPASMS [None]
  - NEUROPATHY [None]
